FAERS Safety Report 8881551 (Version 1)
Quarter: 2012Q4

REPORT INFORMATION
  Report Type: 
  Country: US (occurrence: US)
  Receive Date: 20121101
  Receipt Date: 20121101
  Transmission Date: 20130627
  Serious: Yes (Hospitalization, Other)
  Sender: FDA-Public Use
  Company Number: US-BAYER-2012-111365

PATIENT
  Sex: Female

DRUGS (3)
  1. BAYER ASPIRIN REGIMEN ADULT LOW STRENGTH [Suspect]
     Dosage: 81 mg, UNK
  2. ALEVE CAPLET/TABLET,MIDOL EXTENDED RELIEF CAPLET [Interacting]
     Dosage: 220 mg, UNK
  3. CELEBREX [Interacting]

REACTIONS (1)
  - Upper gastrointestinal haemorrhage [Unknown]
